FAERS Safety Report 7636146-4 (Version None)
Quarter: 2011Q3

REPORT INFORMATION
  Report Type: 
  Country: None (occurrence: None)
  Receive Date: 20110726
  Receipt Date: 20110719
  Transmission Date: 20111222
  Serious: Yes (Death, Hospitalization)
  Sender: FDA-Public Use
  Company Number: US-ACTELION-A-NJ2011-50467

PATIENT

DRUGS (3)
  1. REVATIO [Concomitant]
  2. VENTAVIS [Suspect]
     Dosage: UNK
     Route: 055
     Dates: start: 20071217
  3. VENTAVIS [Suspect]
     Indication: PULMONARY ARTERIAL HYPERTENSION
     Dosage: UNK
     Route: 055
     Dates: start: 20110601

REACTIONS (4)
  - DEATH [None]
  - INFECTION [None]
  - COMA [None]
  - ENDOTRACHEAL INTUBATION [None]
